FAERS Safety Report 9246814 (Version 1)
Quarter: 2013Q2

REPORT INFORMATION
  Report Type: Spontaneous
  Country: TR (occurrence: TR)
  Receive Date: 20130422
  Receipt Date: 20130422
  Transmission Date: 20140414
  Serious: Yes (Other)
  Sender: FDA-Public Use
  Company Number: TR-JHP PHARMACEUTICALS, LLC-JHP201300187

PATIENT
  Age: 28 Week
  Sex: Female
  Weight: .74 kg

DRUGS (6)
  1. COLY-MYCIN M PARENTERAL [Suspect]
     Indication: ACINETOBACTER INFECTION
     Dosage: 5 MG/KG, DAILY
  2. NETILMICIN [Suspect]
     Indication: ACINETOBACTER INFECTION
     Dosage: 2.6 MG/KG, DAILY
  3. VANCOMYCIN [Suspect]
     Indication: NECROTISING COLITIS
     Dosage: 20 MG/KG, DAILY
  4. AMIKACIN [Concomitant]
     Indication: NECROTISING COLITIS
     Dosage: 10 MG/KG, DAILY
  5. METRONIDAZOLE [Concomitant]
     Dosage: 7.5 MG/KG, DAILY
  6. CAFFEINE [Suspect]

REACTIONS (1)
  - Bartter^s syndrome [Recovered/Resolved]
